FAERS Safety Report 5735824-1 (Version None)
Quarter: 2008Q2

REPORT INFORMATION
  Report Type: 
  Country: None (occurrence: None)
  Receive Date: 20080509
  Receipt Date: 20080501
  Transmission Date: 20081010
  Serious: Yes (Life-Threatening, Disabling, Other)
  Sender: FDA-Public Use
  Company Number: OSCN-PR-0803L-0163

PATIENT
  Age: 65 Year
  Sex: Male

DRUGS (3)
  1. OMNISCAN [Suspect]
     Indication: DRUG USE FOR UNKNOWN INDICATION
     Dosage: 20 ML (0.13 MMOL/KG), SINGLE DOSE, I.V. ; 30 ML (0.20 MMOL/KG), SINGLE DOSE, I.V.
     Route: 042
     Dates: start: 20030429, end: 20030429
  2. OMNISCAN [Suspect]
     Indication: DRUG USE FOR UNKNOWN INDICATION
     Dosage: 20 ML (0.13 MMOL/KG), SINGLE DOSE, I.V. ; 30 ML (0.20 MMOL/KG), SINGLE DOSE, I.V.
     Route: 042
     Dates: start: 20030430, end: 20030430
  3. EPOGEN [Concomitant]

REACTIONS (4)
  - CARDIAC VALVE VEGETATION [None]
  - ENDOCARDITIS [None]
  - NEPHROGENIC SYSTEMIC FIBROSIS [None]
  - STAPHYLOCOCCAL BACTERAEMIA [None]
